FAERS Safety Report 4400572-7 (Version None)
Quarter: 2004Q3

REPORT INFORMATION
  Report Type: 
  Country: None (occurrence: None)
  Receive Date: 20040716
  Receipt Date: 20040716
  Transmission Date: 20050211
  Serious: No
  Sender: FDA-Public Use
  Company Number: None

PATIENT
  Sex: Female

DRUGS (3)
  1. PAXIL [Suspect]
     Indication: ANXIETY
     Dosage: 1 TABLET  DAILY  ORAL
     Route: 048
  2. PAXIL [Suspect]
     Indication: DEPRESSION
     Dosage: 1 TABLET  DAILY  ORAL
     Route: 048
  3. PAXIL [Suspect]
     Indication: PREMENSTRUAL SYNDROME
     Dosage: 1 TABLET  DAILY  ORAL
     Route: 048

REACTIONS (2)
  - BACK PAIN [None]
  - DRUG WITHDRAWAL SYNDROME [None]
